FAERS Safety Report 7077607-9 (Version None)
Quarter: 2010Q4

REPORT INFORMATION
  Report Type: 
  Country: None (occurrence: None)
  Receive Date: 20101101
  Receipt Date: 20101021
  Transmission Date: 20110411
  Serious: Yes (Hospitalization, Disabling, Other)
  Sender: FDA-Public Use
  Company Number: US-CELGENEUS-163-21880-10071005

PATIENT
  Sex: Female
  Weight: 77.18 kg

DRUGS (2)
  1. REVLIMID [Suspect]
     Indication: MANTLE CELL LYMPHOMA
     Route: 048
     Dates: start: 20100708, end: 20100713
  2. REVLIMID [Suspect]
     Route: 048
     Dates: start: 20100720, end: 20100805

REACTIONS (13)
  - AGEUSIA [None]
  - BLOOD GLUCOSE DECREASED [None]
  - DISEASE PROGRESSION [None]
  - DIZZINESS [None]
  - DRY MOUTH [None]
  - EYE HAEMORRHAGE [None]
  - HYPOAESTHESIA ORAL [None]
  - HYPOTENSION [None]
  - MALAISE [None]
  - PRURITUS GENERALISED [None]
  - THROMBOCYTOPENIA [None]
  - UPPER RESPIRATORY TRACT INFECTION [None]
  - VASODILATATION [None]
